FAERS Safety Report 9099451 (Version 1)
Quarter: 2013Q1

REPORT INFORMATION
  Report Type: Spontaneous
  Country: IT (occurrence: IT)
  Receive Date: 20130214
  Receipt Date: 20130214
  Transmission Date: 20140127
  Serious: Yes (Hospitalization)
  Sender: FDA-Public Use
  Company Number: IT-BAXTER-2013BAX005138

PATIENT
  Age: 32 Year
  Sex: Male

DRUGS (4)
  1. HOLOXAN [Suspect]
     Indication: SYNOVIAL SARCOMA METASTATIC
     Dosage: 3 GR/SQUARE METER
     Route: 042
     Dates: start: 20130131, end: 20130131
  2. ACQUA [Suspect]
     Indication: SYNOVIAL SARCOMA METASTATIC
     Route: 042
  3. IFOSFAMIDE [Suspect]
     Indication: SYNOVIAL SARCOMA METASTATIC
     Route: 042
  4. MYOCET [Concomitant]
     Indication: SYNOVIAL SARCOMA METASTATIC
     Route: 042
     Dates: start: 20130131, end: 20130131

REACTIONS (1)
  - Neurotoxicity [Not Recovered/Not Resolved]
